FAERS Safety Report 9162988 (Version 2)
Quarter: 2013Q2

REPORT INFORMATION
  Report Type: Spontaneous
  Country: JP (occurrence: None)
  Receive Date: 20130227
  Receipt Date: 20130405
  Transmission Date: 20140414
  Serious: Yes (Hospitalization)
  Sender: FDA-Public Use
  Company Number: JP-20130015

PATIENT
  Age: 62 Year
  Sex: Male

DRUGS (2)
  1. LIPIODOL [Suspect]
     Indication: THERAPEUTIC EMBOLISATION
     Dosage: UNK (1 IN 1 D)
     Route: 013
     Dates: start: 20060209, end: 20060209
  2. NBCA [Suspect]
     Route: 013

REACTIONS (7)
  - Liver abscess [None]
  - Off label use [None]
  - Metastases to central nervous system [None]
  - Tumour necrosis [None]
  - Immunosuppression [None]
  - Bacterial infection [None]
  - Bile duct obstruction [None]
